FAERS Safety Report 9531043 (Version 1)
Quarter: 2013Q3

REPORT INFORMATION
  Report Type: Spontaneous
  Country: US (occurrence: None)
  Receive Date: 20130916
  Receipt Date: 20130916
  Transmission Date: 20140515
  Serious: Yes (Death)
  Sender: FDA-Public Use
  Company Number: None

PATIENT
  Age: 60 Year
  Sex: Male
  Weight: 68.04 kg

DRUGS (2)
  1. GEMZAR [Suspect]
     Indication: PANCREATIC CARCINOMA METASTATIC
     Route: 042
     Dates: start: 20130605, end: 20130605
  2. GEMZAR [Suspect]
     Indication: METASTASES TO LIVER
     Route: 042
     Dates: start: 20130605, end: 20130605

REACTIONS (4)
  - Confusional state [None]
  - Jaundice [None]
  - Gait disturbance [None]
  - Hepatic failure [None]
